FAERS Safety Report 4427786-4 (Version None)
Quarter: 2004Q3

REPORT INFORMATION
  Report Type: 
  Country: None (occurrence: None)
  Receive Date: 20040816
  Receipt Date: 20040816
  Transmission Date: 20050211
  Serious: Yes (Other)
  Sender: FDA-Public Use
  Company Number: None

PATIENT
  Age: 49 Year
  Sex: Male
  Weight: 94.3482 kg

DRUGS (1)
  1. DURAGESIC [Suspect]
     Dosage: 100 UG 2-3 DAYS TD
     Route: 062

REACTIONS (2)
  - DYSPNOEA [None]
  - MEDICATION ERROR [None]
